FAERS Safety Report 23926550 (Version 1)
Quarter: 2024Q2

REPORT INFORMATION
  Report Type: Spontaneous
  Country: US (occurrence: None)
  Receive Date: 20240531
  Receipt Date: 20240531
  Transmission Date: 20240716
  Serious: Yes (Hospitalization)
  Sender: FDA-Public Use
  Company Number: None

PATIENT
  Sex: Male

DRUGS (4)
  1. EVEROLIMUS [Suspect]
     Active Substance: EVEROLIMUS
     Indication: Tuberous sclerosis complex
     Dosage: FREQUENCY : DAILY;?
     Route: 048
     Dates: start: 202004
  2. EVEROLIMUS [Suspect]
     Active Substance: EVEROLIMUS
     Indication: Central nervous system neoplasm
  3. EVEROLIMUS [Concomitant]
     Active Substance: EVEROLIMUS
  4. EPIDIOLEX [Concomitant]
     Active Substance: CANNABIDIOL

REACTIONS (2)
  - Product use issue [None]
  - Product dose omission issue [None]
